FAERS Safety Report 4840564-7 (Version None)
Quarter: 2005Q4

REPORT INFORMATION
  Report Type: 
  Country: None (occurrence: None)
  Receive Date: 20051130
  Receipt Date: 20051018
  Transmission Date: 20060501
  Serious: No
  Sender: FDA-Public Use
  Company Number: US-BRISTOL-MYERS SQUIBB COMPANY-13148630

PATIENT
  Sex: Male
  Weight: 69 kg

DRUGS (8)
  1. ERBITUX [Suspect]
     Indication: COLORECTAL CANCER METASTATIC
     Route: 042
     Dates: start: 20051011, end: 20051011
  2. AVASTIN [Concomitant]
  3. COMPAZINE [Concomitant]
  4. IMODIUM [Concomitant]
  5. IRINOTECAN HCL [Concomitant]
  6. OXYCONTIN [Concomitant]
  7. OXY-IR [Concomitant]
  8. RESTORIL [Concomitant]

REACTIONS (1)
  - DERMATITIS ACNEIFORM [None]
